FAERS Safety Report 8354050-3 (Version None)
Quarter: 2012Q2

REPORT INFORMATION
  Report Type: 
  Country: None (occurrence: None)
  Receive Date: 20120511
  Receipt Date: 20110110
  Transmission Date: 20120825
  Serious: No
  Sender: FDA-Public Use
  Company Number: US-TEVA-2011000150

PATIENT
  Sex: Male
  Weight: 85.806 kg

DRUGS (7)
  1. AMITRIPTYLINE HCL [Concomitant]
     Dates: start: 20110101, end: 20110108
  2. ZOCOR [Concomitant]
     Dates: start: 20070101
  3. OXYCODONE HCL [Concomitant]
     Dates: start: 20080422
  4. NUVIGIL [Suspect]
     Indication: FATIGUE
     Dosage: 250 MILLIGRAM;
     Route: 048
     Dates: start: 20101001
  5. XANAX [Concomitant]
     Dates: start: 20100701
  6. NUVIGIL [Suspect]
     Indication: DEPRESSION
     Dosage: 150 MILLIGRAM;
     Route: 048
     Dates: start: 20100901, end: 20101001
  7. CYMBALTA [Concomitant]

REACTIONS (1)
  - DRUG TOLERANCE [None]
